FAERS Safety Report 7943751-4 (Version None)
Quarter: 2011Q4

REPORT INFORMATION
  Report Type: 
  Country: None (occurrence: None)
  Receive Date: 20111128
  Receipt Date: 20111122
  Transmission Date: 20120403
  Serious: Yes (Hospitalization)
  Sender: FDA-Public Use
  Company Number: FR-PFIZER INC-2011285000

PATIENT
  Age: 49 Year
  Sex: Male

DRUGS (4)
  1. PREDNISONE TAB [Suspect]
     Dosage: 10 MG, 1X/DAY
     Route: 048
     Dates: start: 20100601
  2. NEORAL [Suspect]
     Dosage: 1 DF, 2X/DAY
     Route: 048
     Dates: start: 20101101
  3. RAMIPRIL [Suspect]
     Dosage: 5 MG, 1X/DAY
     Route: 048
     Dates: start: 20100601
  4. AMLODIPINE BESYLATE [Suspect]
     Dosage: 5 MG, 1X/DAY
     Route: 048
     Dates: start: 20100601, end: 20110922

REACTIONS (1)
  - GYNAECOMASTIA [None]
